FAERS Safety Report 10121141 (Version 1)
Quarter: 2014Q2

REPORT INFORMATION
  Report Type: Spontaneous
  Country: US (occurrence: US)
  Receive Date: 20140425
  Receipt Date: 20140425
  Transmission Date: 20141212
  Serious: No
  Sender: FDA-Public Use
  Company Number: US-ASTRAZENECA-2014SE00394

PATIENT
  Sex: 0

DRUGS (1)
  1. PRILOSEC [Suspect]
     Route: 048
     Dates: end: 20131211

REACTIONS (4)
  - Sensation of foreign body [Recovered/Resolved]
  - Dyspepsia [Recovered/Resolved]
  - Flatulence [Unknown]
  - Eructation [Unknown]
